FAERS Safety Report 24553714 (Version 1)
Quarter: 2024Q4

REPORT INFORMATION
  Report Type: Report from Study
  Country: US (occurrence: US)
  Receive Date: 20241028
  Receipt Date: 20241028
  Transmission Date: 20250115
  Serious: No
  Sender: ROCHE
  Company Number: US-ROCHE-3577956

PATIENT
  Sex: Male
  Weight: 105.0 kg

DRUGS (1)
  1. NUTROPIN AQ [Suspect]
     Active Substance: SOMATROPIN
     Indication: Blood growth hormone
     Dosage: 1/2 DOSE?06/MAY/2024, LAST DOSE
     Route: 065
     Dates: start: 20240429, end: 20240506

REACTIONS (10)
  - Pain in extremity [Unknown]
  - Muscular weakness [Unknown]
  - Fatigue [Unknown]
  - Nausea [Unknown]
  - Headache [Unknown]
  - Emotional disorder [Unknown]
  - Vomiting [Unknown]
  - Speech disorder [Unknown]
  - Mental disorder [Unknown]
  - Confusional state [Unknown]
